FAERS Safety Report 10073448 (Version 3)
Quarter: 2014Q3

REPORT INFORMATION
  Report Type: Spontaneous
  Country: BR (occurrence: BR)
  Receive Date: 20140411
  Receipt Date: 20140711
  Transmission Date: 20150326
  Serious: Yes (Other)
  Sender: FDA-Public Use
  Company Number: BR-ASTRAZENECA-2014SE24618

PATIENT
  Age: 56 Year
  Sex: Female
  Weight: 80 kg

DRUGS (12)
  1. MICARDIS [Suspect]
     Active Substance: TELMISARTAN
     Indication: MITRAL VALVE PROLAPSE
     Route: 048
     Dates: start: 201301
  2. TENORETIC [Suspect]
     Active Substance: ATENOLOL\CHLORTHALIDONE
     Indication: MITRAL VALVE PROLAPSE
     Dosage: 50+12.5 MG, 1/2 TABLET, TWO TIMES A DAY
     Route: 048
     Dates: start: 201406
  3. LEXOTAN [Concomitant]
     Active Substance: BROMAZEPAM
     Indication: PANIC DISORDER
     Dosage: 3 MG, 1/2 TABLET/AS REQUIRED
     Route: 048
  4. ATENOL [Suspect]
     Active Substance: ATENOLOL
     Indication: MITRAL VALVE PROLAPSE
     Route: 048
     Dates: start: 2011
  5. TENORETIC [Suspect]
     Active Substance: ATENOLOL\CHLORTHALIDONE
     Indication: MITRAL VALVE PROLAPSE
     Dosage: 50+12.5 MG, DAILY
     Route: 048
     Dates: start: 1998, end: 2011
  6. TENORETIC [Suspect]
     Active Substance: ATENOLOL\CHLORTHALIDONE
     Indication: MITRAL VALVE PROLAPSE
     Dosage: 50+12.5 MG, DAILY
     Route: 048
     Dates: end: 201301
  7. TENORETIC [Suspect]
     Active Substance: ATENOLOL\CHLORTHALIDONE
     Indication: MITRAL VALVE PROLAPSE
     Dosage: 50+12.5 MG, DAILY
     Route: 048
     Dates: start: 2013
  8. ATENOL [Suspect]
     Active Substance: ATENOLOL
     Indication: MITRAL VALVE PROLAPSE
     Route: 048
  9. TENORETIC [Suspect]
     Active Substance: ATENOLOL\CHLORTHALIDONE
     Indication: MITRAL VALVE PROLAPSE
     Dosage: 50+12.5 MG, 1/2 TABLET, AS NEEDED
     Route: 048
     Dates: start: 2013, end: 2013
  10. LEXOTAN [Concomitant]
     Active Substance: BROMAZEPAM
     Indication: BLOOD PRESSURE INCREASED
     Dosage: 3 MG, 1/2 TABLET/AS REQUIRED
     Route: 048
  11. ATENOL [Suspect]
     Active Substance: ATENOLOL
     Indication: MITRAL VALVE PROLAPSE
     Route: 048
     Dates: end: 1998
  12. GLIFAGE XR (NON-AZ PRODUCT) [Suspect]
     Active Substance: METFORMIN HYDROCHLORIDE
     Indication: GLUCOSE TOLERANCE IMPAIRED
     Route: 048
     Dates: start: 201301

REACTIONS (21)
  - Blood uric acid increased [Unknown]
  - Rhinitis [Recovered/Resolved]
  - Arrhythmia [Recovered/Resolved]
  - Panic attack [Recovered/Resolved]
  - Glucose tolerance impaired [Recovering/Resolving]
  - Panic disorder [Not Recovered/Not Resolved]
  - Off label use [Recovered/Resolved]
  - Blood pressure increased [Recovered/Resolved]
  - Eczema [Recovered/Resolved]
  - Influenza [Not Recovered/Not Resolved]
  - Apnoea [Not Recovered/Not Resolved]
  - Heart rate increased [Recovered/Resolved]
  - Intentional product misuse [Not Recovered/Not Resolved]
  - Swelling [Recovered/Resolved]
  - Gastrooesophageal reflux disease [Not Recovered/Not Resolved]
  - Hot flush [Not Recovered/Not Resolved]
  - Off label use [Not Recovered/Not Resolved]
  - Tooth fracture [Not Recovered/Not Resolved]
  - Weight increased [Recovered/Resolved]
  - Nausea [Not Recovered/Not Resolved]
  - Drug dose omission [Not Recovered/Not Resolved]

NARRATIVE: CASE EVENT DATE: 1998
